FAERS Safety Report 7831955-0 (Version None)
Quarter: 2011Q4

REPORT INFORMATION
  Report Type: 
  Country: None (occurrence: None)
  Receive Date: 20111021
  Receipt Date: 20111012
  Transmission Date: 20120403
  Serious: Yes (Death)
  Sender: FDA-Public Use
  Company Number: GB-RB-032898-11

PATIENT
  Age: 32 Year
  Sex: Male

DRUGS (10)
  1. SUBUTEX [Suspect]
     Indication: PRODUCT USED FOR UNKNOWN INDICATION
     Route: 065
     Dates: start: 20111006, end: 20111011
  2. COCAINE [Concomitant]
     Indication: PRODUCT USED FOR UNKNOWN INDICATION
     Route: 065
  3. OPIOIDS [Suspect]
     Indication: PRODUCT USED FOR UNKNOWN INDICATION
     Dosage: UNKNOWN
     Route: 065
  4. ALCOHOL [Suspect]
     Indication: PRODUCT USED FOR UNKNOWN INDICATION
  5. BENZODIAZEPINES [Suspect]
     Indication: PRODUCT USED FOR UNKNOWN INDICATION
     Dosage: UNKNOWN
     Route: 065
  6. SUBUTEX [Suspect]
     Dosage: ONE DOSE OF 8 MG AND ANOTHER DOSE OF 2 MG
     Route: 065
     Dates: start: 20111011, end: 20111011
  7. SUBUTEX [Suspect]
     Route: 065
     Dates: start: 20111005, end: 20111005
  8. SUBUTEX [Suspect]
     Route: 065
     Dates: start: 20111004, end: 20111004
  9. HEROIN [Concomitant]
     Indication: PRODUCT USED FOR UNKNOWN INDICATION
     Route: 065
  10. METHADONE HCL [Suspect]
     Indication: PRODUCT USED FOR UNKNOWN INDICATION
     Dosage: UNKNOWN
     Route: 065

REACTIONS (3)
  - PSYCHOTIC DISORDER [None]
  - ACCIDENT [None]
  - TOXICITY TO VARIOUS AGENTS [None]
